FAERS Safety Report 7152941-2 (Version None)
Quarter: 2010Q4

REPORT INFORMATION
  Report Type: 
  Country: None (occurrence: None)
  Receive Date: 20101213
  Receipt Date: 20101203
  Transmission Date: 20110411
  Serious: Yes (Other)
  Sender: FDA-Public Use
  Company Number: US-JNJFOC-20100703632

PATIENT
  Sex: Male

DRUGS (9)
  1. LEVAQUIN [Suspect]
     Indication: PROSTATITIS
     Route: 048
  2. LEVAQUIN [Suspect]
     Indication: SINUSITIS
     Route: 048
  3. LEVAQUIN [Suspect]
     Indication: EAR INFECTION
     Route: 048
  4. PREDNISONE [Suspect]
     Indication: INFLAMMATION
     Route: 065
  5. GLUCOPHAGE [Concomitant]
     Indication: DIABETES MELLITUS
     Route: 065
  6. TRICOR [Concomitant]
     Indication: HYPERTRIGLYCERIDAEMIA
     Route: 065
  7. AMARYL [Concomitant]
     Indication: DIABETES MELLITUS
     Route: 065
  8. FLOMAX [Concomitant]
     Indication: PROSTATITIS
     Route: 048
  9. AUGMENTIN [Concomitant]
     Route: 048

REACTIONS (3)
  - EPICONDYLITIS [None]
  - TENDONITIS [None]
  - TRIGGER FINGER [None]
